FAERS Safety Report 19741458 (Version 1)
Quarter: 2021Q3

REPORT INFORMATION
  Report Type: Spontaneous
  Country: US (occurrence: US)
  Receive Date: 20210824
  Receipt Date: 20210824
  Transmission Date: 20211014
  Serious: No
  Sender: FDA-Public Use
  Company Number: US-SA-2021SA272437

PATIENT
  Age: 63 Year
  Sex: Female

DRUGS (1)
  1. LANTUS SOLOSTAR [Suspect]
     Active Substance: INSULIN GLARGINE
     Indication: DIABETES MELLITUS
     Dosage: DRUG STRUCTURE DOSAGE : 35 AT NIGHT 40 IN THE AM DRUG INTERVAL DOSAGE : BID DRUG TREATMENT DURATION:

REACTIONS (1)
  - Inappropriate schedule of product administration [Unknown]
